FAERS Safety Report 6933514-0 (Version None)
Quarter: 2010Q3

REPORT INFORMATION
  Report Type: 
  Country: None (occurrence: None)
  Receive Date: 20100820
  Receipt Date: 20100816
  Transmission Date: 20110219
  Serious: Yes (Hospitalization)
  Sender: FDA-Public Use
  Company Number: US-BRISTOL-MYERS SQUIBB COMPANY-15242126

PATIENT
  Age: 54 Year
  Sex: Female
  Weight: 68 kg

DRUGS (11)
  1. AVAPRO [Suspect]
     Indication: HYPERTENSION
     Dosage: DOSE INCREASED TO 150MG(14JUL2010)
     Dates: start: 20100101
  2. CRESTOR [Concomitant]
  3. ISOSORBIDE [Concomitant]
  4. LANTUS [Concomitant]
  5. NOVOLOG [Concomitant]
  6. PLAVIX [Concomitant]
  7. ASPIRIN [Concomitant]
  8. LEVOTHYROXINE SODIUM [Concomitant]
  9. ZETIA [Concomitant]
  10. NITRODUR II [Concomitant]
     Dosage: PATCH OR SPRAY
  11. CALCIUM + VITAMIN D [Concomitant]

REACTIONS (9)
  - ABDOMINAL DISCOMFORT [None]
  - APPENDICITIS [None]
  - BLOOD GLUCOSE INCREASED [None]
  - COUGH [None]
  - DRY SKIN [None]
  - DYSPEPSIA [None]
  - MUSCULOSKELETAL PAIN [None]
  - MYOCARDIAL INFARCTION [None]
  - NAUSEA [None]
